FAERS Safety Report 9097020 (Version 1)
Quarter: 2013Q1

REPORT INFORMATION
  Report Type: Spontaneous
  Country: US (occurrence: None)
  Receive Date: 20130124
  Receipt Date: 20130124
  Transmission Date: 20140127
  Serious: Yes (Life-Threatening, Hospitalization, Disabling, Other)
  Sender: FDA-Public Use
  Company Number: DSU-2013-00275

PATIENT
  Age: 78 Year
  Sex: Female

DRUGS (28)
  1. OLMETEC [Suspect]
     Indication: PRODUCT USED FOR UNKNOWN INDICATION
     Dosage: 40 MG (20 MG, BID), PER ORAL
  2. SINGULAR [Suspect]
     Indication: ASTHMA
     Route: 048
  3. PRODIF [Suspect]
     Indication: PRODUCT USED FOR UNKNOWN INDICATION
     Route: 042
  4. CATABON [Suspect]
     Indication: PRODUCT USED FOR UNKNOWN INDICATION
     Dosage: 10 MG/ML (QHR), INTRAVENOUS
  5. ALEVIATIN (PHENYTOIN) (PHENYTOIN) [Concomitant]
  6. DIFLUCAN (FLUCONAZOLE) (FLUCONAZOLE) [Concomitant]
  7. PENTCILLIN (PIPERACILLIN SODIUM) (PIPERACILLIN SODIUM) [Concomitant]
  8. LASIX (FUROSEMIDE) (FUROSEMIDE) [Concomitant]
  9. ISEPACIN (ISEPAMICIN SULFATE) (ISEPAMICIN SULFATE) [Concomitant]
  10. AMICALIQ (GLUCOSE, AMINOACETIC ACID, ALANINE, SERINE, ASPARTIC ACID, TYROSINE, LEUCINE, METHIONINE, PHENYLALANINE, HISTIDINE, SODIUM LACTATE, VALINE, THREONINE, TRYPTOPHAN, L-, ISOLEUCINE, ARGININE, PROLINE, DL- LACTIC ACID, LYSINE HYDROCHLORIDE, ARGININE HYDROCHLORIDE, POTASSIUM CHLORIDE, [Concomitant]
  11. ZONISAMIDE (ZONISAMIDE) (ZONISAMIDE) [Concomitant]
  12. NEOPHYLLIN (AMINOPHYLLINE) (AMINOPHYLLINE) [Concomitant]
  13. LAC-B (LACTOBACILLUS BIFIDUS, LYOPHILIZED) (LACTOBACILLUS BIFIDUS, LYOPHILIZED) [Concomitant]
  14. ELEMENMIC (POTASSIUM IODIDE, ZINC SULFATE, COPPER SULFATE, MANGANESE CHLORIDE, FERRIC CHLORIDE) (POTASSIUM IODIDE, ZINC SULFATE, COPPER SULFATE, MANGANESE CHLORIDE, FERRIC CHLORIDE) [Concomitant]
  15. DEPAKENE (VALPROIC ACID) (VALPROIC ACID) [Concomitant]
  16. GASTER (CROMOLYN SODIUM) [Concomitant]
  17. TEGRETOL (CARBAMAZEPINE) (CARBAMAZEPINE) [Concomitant]
  18. MAGNESIUM OXIDE (MAGNESIUM OXIDE) (MAGNESIUM OXIDE) [Concomitant]
  19. SYMMETREL (AMANTADINE HYDROCHLORIDE) (AMANTADINE HYDROCHLORIDE) [Concomitant]
  20. FRANDOL (ISOSORBIDE DINITRATE) (ISOSORBIDE DINITRATE) [Concomitant]
  21. CRAVIT (LEVOFLOXACIN) (LEVOFLOXACIN) [Concomitant]
  22. LACTEC G (SORBITOL, SODIUM LACTATE, POTASSIUM CHLORIDE, SODIUM CHLORIDE, CALCIUM CHLORIDE ANHYDROUS) (SORBITOL, SODIUM LACTATE, POTASSIUM CHLORIDE, SODIUM CHLORIDE, CALCIUM CHLORIDE ANHYDROUS) [Concomitant]
  23. NEOLAMIN 3B INTRAVENOUS (PYRIDOXAL PHOSPHATE, THIAMINE DISULFIDE, HYDROXOCOBALAMIN ACETATE) (PYRIDOXAL PHOSPHATE, THIAMINE DISULFIDE, HYDROXOCOBALAMIN ACETATE) [Concomitant]
  24. ASCORBIC ACID (ASCORBIC ACID) (ASCORBIC ACID) [Concomitant]
  25. VEEN 3G (GLUCOSE, SODIUM ACETATE, POTASSIUM CHLORIDE, SODIUM CHLORIDE, POTASSIUM PHOSPHATE MONOBASIC, MAGNESIUM CHLORIDE ANHYDROUS) (GLUCOSE, SODIUM ACETATE, POTASSIUM CHLORIDE, SODIUM CHLORIDE, POTASSIUM PHOSPHATE MONOBASIC, MAGNESIUM CHLORIDE ANHYDROUS) [Concomitant]
  26. MUCODYNE (CARBOCISTEINE) (CARBOCISTEINE) [Concomitant]
  27. NEOPAREN (AMINO ACIDS, CARBOHYDRATES, ELECTROLYTES, VITAMINS) [Concomitant]
  28. BUFFERIN (ACETYLSALICYLIC ACID) (ACETYLSALICYLIC ACID) [Concomitant]

REACTIONS (15)
  - Vomiting [None]
  - Asthma [None]
  - Atrioventricular block [None]
  - Blood pressure systolic abnormal [None]
  - Bradyarrhythmia [None]
  - Hypoventilation [None]
  - Inflammation [None]
  - Mental impairment [None]
  - Pneumonia bacterial [None]
  - Productive cough [None]
  - Pyrexia [None]
  - Respiratory moniliasis [None]
  - Shock [None]
  - Cardio-respiratory arrest [None]
  - Epilepsy [None]
